FAERS Safety Report 5219038-X (Version None)
Quarter: 2007Q1

REPORT INFORMATION
  Report Type: 
  Country: None (occurrence: None)
  Receive Date: 20070125
  Receipt Date: 20070119
  Transmission Date: 20070707
  Serious: Yes (Hospitalization)
  Sender: FDA-Public Use
  Company Number: NL-ROCHE-478201

PATIENT
  Age: 72 Year
  Sex: Female

DRUGS (3)
  1. BONVIVA [Suspect]
     Indication: OSTEOPOROSIS
     Route: 048
     Dates: start: 20060816, end: 20070109
  2. NORVASC [Concomitant]
     Route: 048
     Dates: start: 20021015
  3. OXOZEPAM [Concomitant]
     Route: 048
     Dates: start: 20000815

REACTIONS (3)
  - ANAEMIA [None]
  - MULTIPLE MYELOMA [None]
  - RENAL FAILURE [None]
